FAERS Safety Report 9314309 (Version 2)
Quarter: 2013Q3

REPORT INFORMATION
  Report Type: Report from Study
  Country: US (occurrence: US)
  Receive Date: 20130529
  Receipt Date: 20130701
  Transmission Date: 20140515
  Serious: No
  Sender: FDA-Public Use
  Company Number: PHEH2013US011659

PATIENT
  Sex: Female

DRUGS (13)
  1. TASIGNA [Suspect]
     Indication: CHRONIC MYELOID LEUKAEMIA
     Dosage: 300 MG, BID
     Route: 048
  2. BENTYL [Concomitant]
  3. BONIVA [Concomitant]
  4. CYMBALTA [Concomitant]
  5. FENTANYL [Concomitant]
  6. GABAPENTIN [Concomitant]
  7. LIDODERM [Concomitant]
  8. LORAZEPAM [Concomitant]
  9. NEXIUM 1-2-3 [Concomitant]
  10. OXYCODONE [Concomitant]
  11. CM PROMETHAZINE [Concomitant]
  12. TRAVATAN [Concomitant]
  13. TRAZODONE [Concomitant]

REACTIONS (1)
  - Drug ineffective [Unknown]
